FAERS Safety Report 19023939 (Version 1)
Quarter: 2021Q1

REPORT INFORMATION
  Report Type: Spontaneous
  Country: DE (occurrence: DE)
  Receive Date: 20210318
  Receipt Date: 20210318
  Transmission Date: 20210420
  Serious: Yes (Hospitalization)
  Sender: FDA-Public Use
  Company Number: DE-AUROBINDO-AUR-APL-2021-010653

PATIENT
  Age: 14 Year
  Sex: Female
  Weight: 60 kg

DRUGS (4)
  1. ALCOHOL. [Suspect]
     Active Substance: ALCOHOL
     Indication: PRODUCT USED FOR UNKNOWN INDICATION
     Dosage: 0.5 LITER (NOT CLEAR)
     Route: 048
     Dates: start: 20200610, end: 20200610
  2. IBUPROFEN 800 MG FILM COATED TABLETS [Suspect]
     Active Substance: IBUPROFEN
     Indication: PRODUCT USED FOR UNKNOWN INDICATION
     Dosage: 4800 MILLIGRAM, ONCE A DAY (EVERY DAYS 6 SEPARATED DOSES)
     Route: 048
     Dates: start: 20200610, end: 20200610
  3. METAMIZOLE [Suspect]
     Active Substance: METAMIZOLE
     Indication: PRODUCT USED FOR UNKNOWN INDICATION
     Dosage: UNK (NOT CLEAR)
     Route: 048
     Dates: start: 20200610, end: 20200610
  4. OMEGA 3 [Suspect]
     Active Substance: OMEGA-3 FATTY ACIDS
     Indication: PRODUCT USED FOR UNKNOWN INDICATION
     Dosage: 4 DOSAGE FORM, ONCE A DAY
     Route: 048
     Dates: start: 20200610, end: 20200610

REACTIONS (2)
  - Intentional overdose [Recovered/Resolved]
  - Toxicity to various agents [Recovered/Resolved]

NARRATIVE: CASE EVENT DATE: 20200610
